FAERS Safety Report 26215404 (Version 2)
Quarter: 2025Q4

REPORT INFORMATION
  Report Type: Spontaneous
  Country: US (occurrence: US)
  Receive Date: 20251231
  Receipt Date: 20251231
  Transmission Date: 20260117
  Serious: Yes (Other)
  Sender: ROCHE
  Company Number: US-ROCHE-10000463681

PATIENT
  Age: 31 Year
  Sex: Female

DRUGS (8)
  1. CELLCEPT [Suspect]
     Active Substance: MYCOPHENOLATE MOFETIL
     Indication: Systemic lupus erythematosus
  2. LOVENOX [Concomitant]
     Active Substance: ENOXAPARIN SODIUM
  3. IMURAN [Concomitant]
     Active Substance: AZATHIOPRINE
  4. PLAQUENIL [Concomitant]
     Active Substance: HYDROXYCHLOROQUINE SULFATE
  5. BENLYSTA [Concomitant]
     Active Substance: BELIMUMAB
  6. LIPITOR [Concomitant]
     Active Substance: ATORVASTATIN CALCIUM
  7. FARXIGA [Concomitant]
     Active Substance: DAPAGLIFLOZIN PROPANEDIOL
  8. PREDNISONE [Concomitant]
     Active Substance: PREDNISONE

REACTIONS (4)
  - Protein urine [Unknown]
  - Arthralgia [Unknown]
  - Systemic lupus erythematosus [Unknown]
  - Maternal exposure before pregnancy [Unknown]
